FAERS Safety Report 21357331 (Version 1)
Quarter: 2022Q3

REPORT INFORMATION
  Report Type: Spontaneous
  Country: US (occurrence: US)
  Receive Date: 20220921
  Receipt Date: 20220921
  Transmission Date: 20221027
  Serious: No
  Sender: FDA-Public Use
  Company Number: US-BRISTOL-MYERS SQUIBB COMPANY-2022-109036

PATIENT
  Age: 69 Year
  Sex: Male

DRUGS (1)
  1. POMALYST [Suspect]
     Active Substance: POMALIDOMIDE
     Indication: Dizziness
     Route: 048

REACTIONS (9)
  - Asthenia [Unknown]
  - Musculoskeletal chest pain [Unknown]
  - Pelvic pain [Unknown]
  - Arthralgia [Unknown]
  - Neck pain [Unknown]
  - Nausea [Unknown]
  - Insomnia [Unknown]
  - Pruritus [Unknown]
  - Intentional product use issue [Unknown]
